FAERS Safety Report 20835526 (Version 1)
Quarter: 2022Q2

REPORT INFORMATION
  Report Type: Spontaneous
  Country: US (occurrence: US)
  Receive Date: 20220516
  Receipt Date: 20220516
  Transmission Date: 20220721
  Serious: No
  Sender: FDA-Public Use
  Company Number: US-PFIZER INC-202101771351

PATIENT
  Age: 65 Year
  Sex: Male
  Weight: 79.38 kg

DRUGS (1)
  1. LEVOTHYROXINE SODIUM [Suspect]
     Active Substance: LEVOTHYROXINE SODIUM
     Indication: Thyroid disorder
     Dosage: 137 UG, 1X/DAY
     Route: 048

REACTIONS (1)
  - Drug ineffective [Unknown]
